FAERS Safety Report 4316490-9 (Version None)
Quarter: 2004Q1

REPORT INFORMATION
  Report Type: 
  Country: None (occurrence: None)
  Receive Date: 20040311
  Receipt Date: 20031217
  Transmission Date: 20041129
  Serious: Yes (Hospitalization)
  Sender: FDA-Public Use
  Company Number: BE-JNJFOC-20031204464

PATIENT
  Sex: Female

DRUGS (5)
  1. PREPULSIDE (CISAPRIDE) SUSPENSION [Suspect]
     Indication: GASTROOESOPHAGEAL REFLUX DISEASE
     Dosage: 1.4 MG, 3 IN 1 DAY, ORAL
     Route: 048
     Dates: start: 20030218
  2. LOSEC (OMEPRAZOLE) [Concomitant]
  3. ATROVENT (INHALATION) IPRATROPIUM BROMIDE [Concomitant]
  4. VENTOLIN (SALBUTAMOL) INHALATION [Concomitant]
  5. PULMICORT (BUDESONIDE) INHALATION [Concomitant]

REACTIONS (6)
  - ATELECTASIS [None]
  - BRONCHITIS [None]
  - CONDITION AGGRAVATED [None]
  - ENDOSCOPY GASTROINTESTINAL ABNORMAL [None]
  - GASTROOESOPHAGEAL REFLUX DISEASE [None]
  - VIRUS SEROLOGY TEST POSITIVE [None]
